FAERS Safety Report 18448644 (Version 4)
Quarter: 2020Q4

REPORT INFORMATION
  Report Type: Spontaneous
  Country: US (occurrence: US)
  Receive Date: 20201031
  Receipt Date: 20201112
  Transmission Date: 20210114
  Serious: Yes (Death, Life-Threatening)
  Sender: FDA-Public Use
  Company Number: US-CELGENEUS-USA-20200303422

PATIENT
  Sex: Male

DRUGS (2)
  1. ABRAXANE [Suspect]
     Active Substance: PACLITAXEL
     Dosage: 3 VIALS OF 100 MG PER VIAL
     Route: 041
     Dates: end: 20200319
  2. ABRAXANE [Suspect]
     Active Substance: PACLITAXEL
     Indication: PANCREATIC CARCINOMA
     Dosage: 3 VIALS OF 100 MG PER VIAL (FOR 2 WEEKS)
     Route: 041
     Dates: start: 20190529

REACTIONS (2)
  - Pancreatic carcinoma metastatic [Fatal]
  - Unevaluable event [Fatal]

NARRATIVE: CASE EVENT DATE: 20200219
